FAERS Safety Report 8879595 (Version 1)
Quarter: 2012Q4

REPORT INFORMATION
  Report Type: 
  Country: US (occurrence: US)
  Receive Date: 20121101
  Receipt Date: 20121101
  Transmission Date: 20130627
  Serious: Yes (Death)
  Sender: FDA-Public Use
  Company Number: US-ASTELLAS-2012US010176

PATIENT
  Age: 87 Year
  Sex: Male

DRUGS (2)
  1. XTANDI [Suspect]
     Indication: PROSTATE CANCER
     Dosage: 160 mg, UID/QD
     Route: 048
     Dates: start: 20120919
  2. DIURETICS [Concomitant]
     Indication: DIURETIC THERAPY
     Dosage: UNK
     Route: 065

REACTIONS (6)
  - Death [Fatal]
  - Dyspnoea [Unknown]
  - Oedema [Unknown]
  - Formication [Recovering/Resolving]
  - Anxiety [Recovering/Resolving]
  - Blood pressure increased [Unknown]
